FAERS Safety Report 11376158 (Version 1)
Quarter: 2015Q3

REPORT INFORMATION
  Report Type: Spontaneous
  Country: GB (occurrence: GB)
  Receive Date: 20150813
  Receipt Date: 20150813
  Transmission Date: 20151125
  Serious: Yes (Hospitalization, Other)
  Sender: FDA-Public Use
  Company Number: GB-TEVA-583755ACC

PATIENT
  Age: 78 Year
  Sex: Male
  Weight: 72 kg

DRUGS (15)
  1. LINAGLIPTIN [Concomitant]
     Active Substance: LINAGLIPTIN
  2. METFORMIN [Concomitant]
     Active Substance: METFORMIN HYDROCHLORIDE
     Dosage: STOPPED
  3. PERINDOPRIL ARGININE [Concomitant]
     Active Substance: PERINDOPRIL ARGININE
     Dosage: STOPPED.
  4. ASACOL [Interacting]
     Active Substance: MESALAMINE
     Indication: COLITIS ULCERATIVE
     Dosage: 4800 MILLIGRAM DAILY;
     Route: 048
     Dates: start: 201503
  5. ATORVASTATIN [Concomitant]
     Active Substance: ATORVASTATIN
  6. CLOPIDOGREL [Concomitant]
     Active Substance: CLOPIDOGREL BISULFATE
  7. INDAPAMIDE. [Concomitant]
     Active Substance: INDAPAMIDE
     Dosage: STOPPED.
  8. LANSOPRAZOLE. [Suspect]
     Active Substance: LANSOPRAZOLE
     Indication: HYPERCHLORHYDRIA
     Dosage: 30 MG, IN MORNING
     Route: 048
  9. TUMS [Interacting]
     Active Substance: CALCIUM CARBONATE
     Indication: DYSPEPSIA
  10. AMLODIPINE [Concomitant]
     Active Substance: AMLODIPINE BESYLATE
  11. PREDNISOLONE. [Concomitant]
     Active Substance: PREDNISOLONE
  12. ADCAL-D3 [Interacting]
     Active Substance: CALCIUM CARBONATE\CHOLECALCIFEROL
     Indication: DYSPEPSIA
     Route: 048
     Dates: start: 201503
  13. DOXAZOSIN [Concomitant]
     Active Substance: DOXAZOSIN\DOXAZOSIN MESYLATE
  14. CETIRIZINE [Concomitant]
     Active Substance: CETIRIZINE HYDROCHLORIDE
  15. GLICLAZIDE [Concomitant]
     Active Substance: GLICLAZIDE

REACTIONS (5)
  - Colitis ulcerative [Unknown]
  - Drug interaction [Unknown]
  - Gastric pH increased [Not Recovered/Not Resolved]
  - Acute kidney injury [Not Recovered/Not Resolved]
  - Haemoglobin decreased [Unknown]
